FAERS Safety Report 16347323 (Version 1)
Quarter: 2019Q3

REPORT INFORMATION
  Report Type: Spontaneous
  Country: US (occurrence: US)
  Receive Date: 20190522
  Receipt Date: 20190522
  Transmission Date: 20191004
  Serious: Yes (Other)
  Sender: FDA-Public Use
  Company Number: None

PATIENT
  Age: 36 Year
  Sex: Female
  Weight: 77.85 kg

DRUGS (5)
  1. AIMOVIG [Suspect]
     Active Substance: ERENUMAB-AOOE
     Indication: MIGRAINE
     Dosage: ?          QUANTITY:1 INJECTION(S);OTHER FREQUENCY:ONCE MONTHLY;?
     Route: 058
     Dates: start: 20190405
  2. TYLENOL [Concomitant]
     Active Substance: ACETAMINOPHEN
  3. KOLONIPIN [Concomitant]
     Active Substance: CLONAZEPAM
  4. AIMOVIG [Concomitant]
     Active Substance: ERENUMAB-AOOE
  5. ZYRTEC [Concomitant]
     Active Substance: CETIRIZINE HYDROCHLORIDE

REACTIONS (7)
  - Fatigue [None]
  - Muscle spasms [None]
  - Weight increased [None]
  - Memory impairment [None]
  - Influenza like illness [None]
  - Constipation [None]
  - Arthralgia [None]

NARRATIVE: CASE EVENT DATE: 20190505
